FAERS Safety Report 5807978-X (Version None)
Quarter: 2008Q3

REPORT INFORMATION
  Report Type: 
  Country: None (occurrence: None)
  Receive Date: 20080711
  Receipt Date: 20080701
  Transmission Date: 20090109
  Serious: Yes (Disabling, Other)
  Sender: FDA-Public Use
  Company Number: JP-PFIZER INC-2008052585

PATIENT
  Age: 39 Year
  Sex: Female

DRUGS (4)
  1. DIFLUCAN [Suspect]
     Indication: SYSTEMIC CANDIDA
     Route: 048
  2. VFEND [Suspect]
     Indication: SYSTEMIC CANDIDA
     Dosage: DAILY DOSE:400MG
     Route: 042
     Dates: start: 20071214, end: 20080101
  3. DRUG, UNSPECIFIED [Concomitant]
  4. MICAFUNGIN [Concomitant]
     Route: 042

REACTIONS (1)
  - DEAFNESS [None]
